FAERS Safety Report 6733626-0 (Version None)
Quarter: 2010Q2

REPORT INFORMATION
  Report Type: 
  Country: None (occurrence: None)
  Receive Date: 20100520
  Receipt Date: 20100510
  Transmission Date: 20101027
  Serious: Yes (Disabling)
  Sender: FDA-Public Use
  Company Number: JP-PFIZER INC-2009247747

PATIENT
  Age: 73 Year
  Sex: Female
  Weight: 43 kg

DRUGS (3)
  1. SUNITINIB MALATE [Suspect]
     Indication: RENAL CELL CARCINOMA
     Dosage: 25 MG, 1X/DAY
     Route: 048
     Dates: start: 20090527
  2. CANDESARTAN CILEXETIL [Concomitant]
     Dosage: UNK
     Route: 048
     Dates: start: 20090530
  3. ADALAT [Concomitant]
     Dosage: UNK
     Route: 048
     Dates: start: 20090602

REACTIONS (1)
  - HYPOTHYROIDISM [None]
